FAERS Safety Report 5780490-2 (Version None)
Quarter: 2008Q2

REPORT INFORMATION
  Report Type: 
  Country: None (occurrence: None)
  Receive Date: 20080620
  Receipt Date: 20080611
  Transmission Date: 20081010
  Serious: Yes (Hospitalization)
  Sender: FDA-Public Use
  Company Number: DK-JNJFOC-20080504098

PATIENT
  Sex: Female
  Weight: 65 kg

DRUGS (5)
  1. REMICADE [Suspect]
     Indication: RHEUMATOID ARTHRITIS
     Route: 042
  2. METHOTREXATE [Concomitant]
  3. ACETAMINOPHEN [Concomitant]
  4. BRUFEN [Concomitant]
  5. FOLIC ACID [Concomitant]

REACTIONS (4)
  - BLISTER [None]
  - INFUSION RELATED REACTION [None]
  - PRURITUS GENERALISED [None]
  - RASH [None]
